FAERS Safety Report 8821442 (Version 1)
Quarter: 2012Q4

REPORT INFORMATION
  Report Type: 
  Country: US (occurrence: US)
  Receive Date: 20121002
  Receipt Date: 20121002
  Transmission Date: 20130627
  Serious: Yes (Death, Hospitalization, Other)
  Sender: FDA-Public Use
  Company Number: US-ROCHE-1134420

PATIENT
  Sex: Female

DRUGS (15)
  1. RITUXAN [Suspect]
     Indication: CHRONIC LYMPHOCYTIC LEUKAEMIA
     Route: 065
  2. RITUXAN [Suspect]
     Route: 065
     Dates: start: 20011004
  3. RITUXAN [Suspect]
     Route: 065
     Dates: start: 20011008
  4. FLUDARABINE [Concomitant]
  5. LASIX [Concomitant]
     Route: 065
  6. ZAROXOLYN [Concomitant]
     Route: 065
  7. ERYTHROPOIETIN [Concomitant]
  8. NEGGRAM [Concomitant]
  9. PEPCID [Concomitant]
  10. NITRO PATCH [Concomitant]
  11. PREDNISONE [Concomitant]
     Route: 065
  12. NORVASC [Concomitant]
  13. AMARYL [Concomitant]
  14. GENTAMICIN [Concomitant]
  15. LEVAQUIN [Concomitant]

REACTIONS (13)
  - Death [Fatal]
  - Anaemia [Unknown]
  - Thrombocytopenia [Unknown]
  - Gastrointestinal haemorrhage [Unknown]
  - Diverticulum intestinal [Unknown]
  - Hypoxia [Unknown]
  - Dyspnoea [Unknown]
  - Leukopenia [Unknown]
  - Myelodysplastic syndrome [Unknown]
  - Urinary tract infection [Unknown]
  - Ecchymosis [Unknown]
  - Dyspnoea exertional [Unknown]
  - Asthenia [Unknown]
